FAERS Safety Report 6214539-X (Version None)
Quarter: 2009Q2

REPORT INFORMATION
  Report Type: 
  Country: None (occurrence: None)
  Receive Date: 20090604
  Receipt Date: 20090525
  Transmission Date: 20091009
  Serious: Yes (Death, Hospitalization, Other)
  Sender: FDA-Public Use
  Company Number: GB-AVENTIS-200915462GDDC

PATIENT

DRUGS (2)
  1. GLIBENCLAMIDE [Suspect]
     Route: 048
  2. METFORMIN HYDROCHLORIDE [Suspect]
     Route: 048

REACTIONS (6)
  - ACUTE CORONARY SYNDROME [None]
  - COMA [None]
  - DEATH [None]
  - DEPRESSED LEVEL OF CONSCIOUSNESS [None]
  - FALL [None]
  - HYPOGLYCAEMIA [None]
